FAERS Safety Report 5345417-6 (Version None)
Quarter: 2007Q2

REPORT INFORMATION
  Report Type: 
  Country: None (occurrence: None)
  Receive Date: 20070601
  Receipt Date: 20070518
  Transmission Date: 20071010
  Serious: Yes (Hospitalization, Other)
  Sender: FDA-Public Use
  Company Number: 2007S1004403

PATIENT
  Age: 50 Year
  Sex: Male

DRUGS (8)
  1. FENTANYL TRANSDERMAL SYSTEM [Suspect]
     Indication: HEPATIC NEOPLASM MALIGNANT
     Dosage: SEE IMAGE
     Route: 062
     Dates: start: 20070201, end: 20070401
  2. FENTANYL TRANSDERMAL SYSTEM [Suspect]
     Indication: HEPATIC NEOPLASM MALIGNANT
     Dosage: SEE IMAGE
     Route: 062
     Dates: start: 20070401, end: 20070414
  3. FENTANYL TRANSDERMAL SYSTEM [Suspect]
     Indication: HEPATIC NEOPLASM MALIGNANT
     Dosage: SEE IMAGE
     Route: 062
     Dates: start: 20070514
  4. LISINOPRIL [Concomitant]
  5. ZIAC  /01166101/ [Concomitant]
  6. HYDROXYZINE  /00058402/ [Concomitant]
  7. B6 [Concomitant]
  8. ISONIAZID DC [Concomitant]

REACTIONS (8)
  - AMNESIA [None]
  - COLD SWEAT [None]
  - CONVULSION [None]
  - DIZZINESS [None]
  - LOSS OF CONSCIOUSNESS [None]
  - NEPHROLITHIASIS [None]
  - NERVOUSNESS [None]
  - SKIN LACERATION [None]
